FAERS Safety Report 6062985-X (Version None)
Quarter: 2009Q1

REPORT INFORMATION
  Report Type: 
  Country: None (occurrence: None)
  Receive Date: 20090203
  Receipt Date: 20090123
  Transmission Date: 20090719
  Serious: Yes (Hospitalization)
  Sender: FDA-Public Use
  Company Number: B0555792A

PATIENT
  Age: 81 Year
  Sex: Female

DRUGS (2)
  1. AUGMENTIN '125' [Suspect]
     Dosage: 1G THREE TIMES PER DAY
     Route: 042
     Dates: start: 20081105, end: 20081107
  2. PREVISCAN [Suspect]
     Indication: PHLEBITIS
     Route: 065
     Dates: start: 20080810, end: 20081110

REACTIONS (1)
  - HYPOCOAGULABLE STATE [None]
